FAERS Safety Report 6886368-5 (Version None)
Quarter: 2010Q3

REPORT INFORMATION
  Report Type: 
  Country: None (occurrence: None)
  Receive Date: 20100729
  Receipt Date: 20090421
  Transmission Date: 20110219
  Serious: No
  Sender: FDA-Public Use
  Company Number: US-PFIZER INC-2009162314

PATIENT
  Sex: Female
  Weight: 86.182 kg

DRUGS (3)
  1. CELEBREX [Suspect]
     Indication: POLYARTHRITIS
     Dosage: 200 MG, 1X/DAY
     Dates: start: 20040101
  2. CELEBREX [Suspect]
     Indication: BACK PAIN
  3. ACETYLSALICYLIC ACID [Concomitant]
     Dosage: UNK

REACTIONS (1)
  - SKIN WRINKLING [None]
